FAERS Safety Report 6062314-1 (Version None)
Quarter: 2009Q1

REPORT INFORMATION
  Report Type: 
  Country: None (occurrence: None)
  Receive Date: 20090129
  Receipt Date: 20090122
  Transmission Date: 20090719
  Serious: No
  Sender: FDA-Public Use
  Company Number: MSTR-NO-0809S-0073

PATIENT
  Age: 73 Year
  Sex: Male
  Weight: 60 kg

DRUGS (4)
  1. METASTRON [Suspect]
     Indication: METASTATIC PAIN
     Dosage: NR, SINGLE DOSE, I.V.
     Route: 042
     Dates: start: 20080605, end: 20080605
  2. TEGAFUR URACIL (UFT/LV) [Concomitant]
  3. LEUCOVORIN (LV) [Concomitant]
  4. IRINOTECAN (CPP-11) [Concomitant]

REACTIONS (2)
  - BONE MARROW FAILURE [None]
  - DISEASE PROGRESSION [None]
